FAERS Safety Report 23374974 (Version 1)
Quarter: 2024Q1

REPORT INFORMATION
  Report Type: Spontaneous
  Country: DE (occurrence: DE)
  Receive Date: 20240106
  Receipt Date: 20240106
  Transmission Date: 20240410
  Serious: Yes (Other)
  Sender: FDA-Public Use
  Company Number: DE-CHEPLA-2023015291

PATIENT
  Age: 37 Year
  Sex: Female
  Weight: 115 kg

DRUGS (7)
  1. METFORMIN [Suspect]
     Active Substance: METFORMIN HYDROCHLORIDE
     Indication: Gestational diabetes
     Dosage: 500 MILLIGRAM X3/D
     Route: 065
  2. METFORMIN [Suspect]
     Active Substance: METFORMIN HYDROCHLORIDE
     Dosage: 500 MILLIGRAM, ONCE A DAY
     Route: 065
  3. METFORMIN [Suspect]
     Active Substance: METFORMIN HYDROCHLORIDE
     Dosage: 500 MILLIGRAM X4/D
     Route: 065
  4. METHYLDOPA [Suspect]
     Active Substance: METHYLDOPA
     Indication: Gestational hypertension
     Dosage: 125 MILLIGRAM (X3/D)
     Route: 065
  5. METHYLDOPA [Suspect]
     Active Substance: METHYLDOPA
     Dosage: 250 MILLIGRAM (X3/D)
     Route: 065
  6. METHYLDOPA [Suspect]
     Active Substance: METHYLDOPA
     Dosage: 1000 MILLIGRAM, ONCE A DAY
     Route: 065
  7. ASPIRIN [Concomitant]
     Active Substance: ASPIRIN
     Indication: Prophylaxis
     Dosage: 150 MILLIGRAM
     Route: 065

REACTIONS (2)
  - Oedema [Unknown]
  - Drug ineffective [Unknown]
